FAERS Safety Report 6758954-4 (Version None)
Quarter: 2010Q2

REPORT INFORMATION
  Report Type: 
  Country: None (occurrence: None)
  Receive Date: 20100607
  Receipt Date: 20100531
  Transmission Date: 20101027
  Serious: Yes (Death)
  Sender: FDA-Public Use
  Company Number: GR-AMGEN-KDL415486

PATIENT
  Age: 67 Year
  Sex: Male

DRUGS (1)
  1. VECTIBIX [Suspect]
     Indication: COLORECTAL CANCER
     Route: 041
     Dates: start: 20080701

REACTIONS (3)
  - DEATH [None]
  - DERMATITIS ACNEIFORM [None]
  - DIARRHOEA [None]
